FAERS Safety Report 12081023 (Version 2)
Quarter: 2016Q2

REPORT INFORMATION
  Report Type: Spontaneous
  Country: US (occurrence: US)
  Receive Date: 20160216
  Receipt Date: 20160517
  Transmission Date: 20160815
  Serious: Yes (Hospitalization)
  Sender: FDA-Public Use
  Company Number: US-PFIZER INC-2016078775

PATIENT
  Age: 79 Year
  Sex: Male
  Weight: 83.91 kg

DRUGS (2)
  1. TIKOSYN [Suspect]
     Active Substance: DOFETILIDE
     Indication: ATRIAL FIBRILLATION
     Dosage: UNK UNK, 2X/DAY
     Route: 048
     Dates: start: 2014, end: 2014
  2. TIKOSYN [Suspect]
     Active Substance: DOFETILIDE
     Dosage: UNK, 2X/DAY
     Route: 048
     Dates: start: 2014

REACTIONS (1)
  - Drug ineffective [Recovered/Resolved]

NARRATIVE: CASE EVENT DATE: 2015
